FAERS Safety Report 14582992 (Version 2)
Quarter: 2018Q1

REPORT INFORMATION
  Report Type: Spontaneous
  Country: US (occurrence: US)
  Receive Date: 20180228
  Receipt Date: 20180305
  Transmission Date: 20180509
  Serious: Yes (Hospitalization, Other)
  Sender: FDA-Public Use
  Company Number: US-BRISTOL-MYERS SQUIBB COMPANY-BMS-2018-014947

PATIENT
  Age: 52 Year
  Sex: Female

DRUGS (1)
  1. IPILIMUMAB [Suspect]
     Active Substance: IPILIMUMAB
     Indication: MALIGNANT MELANOMA
     Dosage: 10 MG/KG, UNK
     Route: 065

REACTIONS (7)
  - Diarrhoea [Unknown]
  - Prescribed overdose [Unknown]
  - Dry gangrene [Unknown]
  - Oral pain [Unknown]
  - Vasculitis [Not Recovered/Not Resolved]
  - Peripheral ischaemia [Unknown]
  - Pneumonitis [Recovering/Resolving]
